FAERS Safety Report 15411048 (Version 2)
Quarter: 2018Q4

REPORT INFORMATION
  Report Type: Spontaneous
  Country: US (occurrence: US)
  Receive Date: 20180921
  Receipt Date: 20181003
  Transmission Date: 20190204
  Serious: Yes (Hospitalization, Other)
  Sender: FDA-Public Use
  Company Number: US-DRREDDYS-USA/USA/18/0104179

PATIENT
  Age: 24 Year
  Sex: Female

DRUGS (3)
  1. RISPERIDONE. [Suspect]
     Active Substance: RISPERIDONE
     Indication: PRADER-WILLI SYNDROME
     Route: 065
  2. LORAZEPAM. [Concomitant]
     Active Substance: LORAZEPAM
     Indication: CATATONIA
     Route: 042
  3. LORAZEPAM. [Concomitant]
     Active Substance: LORAZEPAM

REACTIONS (8)
  - Fall [Unknown]
  - Encephalopathy [Unknown]
  - Haemodynamic instability [Recovered/Resolved]
  - Bradycardia [Unknown]
  - Hypertension [Unknown]
  - Pancytopenia [Unknown]
  - Catatonia [Unknown]
  - Hyponatraemia [Recovered/Resolved]
